FAERS Safety Report 25834677 (Version 1)
Quarter: 2025Q3

REPORT INFORMATION
  Report Type: Spontaneous
  Country: US (occurrence: US)
  Receive Date: 20250923
  Receipt Date: 20250923
  Transmission Date: 20251021
  Serious: No
  Sender: AMGEN
  Company Number: US-AMGEN-USASP2025186034

PATIENT
  Sex: Female
  Weight: 70.748 kg

DRUGS (17)
  1. REPATHA [Suspect]
     Active Substance: EVOLOCUMAB
     Indication: Product used for unknown indication
     Dosage: 140 MILLIGRAM, Q2WK
     Route: 065
     Dates: start: 20240711
  2. ZOLOFT [Concomitant]
     Active Substance: SERTRALINE HYDROCHLORIDE
     Dosage: 50 MILLIGRAM, QD
     Dates: start: 20241205
  3. SYNTHROID [Concomitant]
     Active Substance: LEVOTHYROXINE SODIUM
     Dosage: 150 MICROGRAM, QD
     Dates: start: 20230822
  4. SINGULAIR [Concomitant]
     Active Substance: MONTELUKAST SODIUM
     Dosage: 10 MILLIGRAM, QD
     Dates: start: 20230822
  5. NEXLIZET [Concomitant]
     Active Substance: BEMPEDOIC ACID\EZETIMIBE
     Dosage: 10 MILLIGRAM (180 MG)
     Dates: start: 20231213
  6. IBUPROFEN [Concomitant]
     Active Substance: IBUPROFEN
     Dates: start: 20230822
  7. BENTYL [Concomitant]
     Active Substance: DICYCLOMINE HYDROCHLORIDE
     Dosage: 10 MILLIGRAM, QD (IM SOLUTION)
     Dates: start: 20230822
  8. ADDERALL [Concomitant]
     Active Substance: AMPHETAMINE ASPARTATE\AMPHETAMINE SULFATE\DEXTROAMPHETAMINE SACCHARATE\DEXTROAMPHETAMINE SULFATE
     Dosage: 25 MILLIGRAM, QD
     Dates: start: 20230822
  9. ONDANSETRON [Concomitant]
     Active Substance: ONDANSETRON
     Dosage: 4 MILLIGRAM, QD (DISINTEGRATING TABLET) AS NEEDED
     Dates: start: 20250313
  10. OMEPRAZOLE [Concomitant]
     Active Substance: OMEPRAZOLE
     Dosage: 20 MILLIGRAM, Q12H (TAKE ONE TABLET )
     Dates: start: 20240919
  11. METRONIDAZOLE [Concomitant]
     Active Substance: METRONIDAZOLE
     Dosage: 250 MILLIGRAM, Q4H (ONE TABLET )
     Dates: start: 20230822
  12. FLONASE [Concomitant]
     Active Substance: FLUTICASONE PROPIONATE
     Dosage: 50 MICROGRAM, QD (ONE SPRAY IN EACH NOSTRIL DAILY)
     Route: 045
     Dates: start: 20250418
  13. CYMBALTA [Concomitant]
     Active Substance: DULOXETINE HYDROCHLORIDE
     Dosage: 30 MILLIGRAM, QD (ONE TABLET )
     Dates: start: 20240919
  14. BACTRIM [Concomitant]
     Active Substance: SULFAMETHOXAZOLE\TRIMETHOPRIM
     Dosage: 80 MILLIGRAM, Q12H (400 MG) (FOR 7 DAY)
     Dates: start: 20240925
  15. ALBUTEROL SULFATE [Concomitant]
     Active Substance: ALBUTEROL SULFATE
  16. ADVAIR HFA [Concomitant]
     Active Substance: FLUTICASONE PROPIONATE\SALMETEROL XINAFOATE
     Dosage: 21 MICROGRAM (230 MCG) ACTUATION AEROSOL INHALER (ONE TIME)
     Dates: start: 20241004
  17. EPIPEN [Concomitant]
     Active Substance: EPINEPHRINE

REACTIONS (5)
  - Pulmonary mass [Unknown]
  - Chest discomfort [Unknown]
  - Wheezing [Unknown]
  - Cough [Unknown]
  - Dyspnoea [Unknown]
